FAERS Safety Report 5852378-X (Version None)
Quarter: 2008Q3

REPORT INFORMATION
  Report Type: 
  Country: None (occurrence: None)
  Receive Date: 20080821
  Receipt Date: 20080812
  Transmission Date: 20090109
  Serious: Yes (Other)
  Sender: FDA-Public Use
  Company Number: FR-JNJFOC-20080802888

PATIENT
  Age: 57 Year
  Sex: Female

DRUGS (6)
  1. REMICADE [Suspect]
     Route: 042
  2. REMICADE [Suspect]
     Route: 042
  3. REMICADE [Suspect]
     Indication: PSORIASIS
     Route: 042
  4. METHOTREXATE SODIUM [Concomitant]
  5. NSAID [Concomitant]
  6. PROPOXYPHENE HCL AND ACETAMINOPHEN [Concomitant]

REACTIONS (1)
  - VISUAL ACUITY REDUCED [None]
